FAERS Safety Report 9956782 (Version 1)
Quarter: 2014Q1

REPORT INFORMATION
  Report Type: Spontaneous
  Country: US (occurrence: US)
  Receive Date: 20140304
  Receipt Date: 20140304
  Transmission Date: 20141002
  Serious: No
  Sender: FDA-Public Use
  Company Number: US-ABBVIE-13P-163-1098684-00

PATIENT
  Age: 33 Year
  Sex: Female
  Weight: 55.84 kg

DRUGS (6)
  1. HUMIRA [Suspect]
     Indication: PSORIASIS
     Dates: start: 201301, end: 201303
  2. HUMIRA [Suspect]
     Indication: PSORIASIS
  3. HUMIRA [Suspect]
     Indication: PUSTULAR PSORIASIS
     Dates: start: 201303
  4. LEVOTHYROXINE [Concomitant]
     Indication: THYROID DISORDER
  5. ZIRTEC [Concomitant]
     Indication: PRURITUS
  6. IBUPROFEN [Concomitant]
     Indication: PAIN

REACTIONS (3)
  - Off label use [Not Recovered/Not Resolved]
  - Drug effect decreased [Unknown]
  - Psoriatic arthropathy [Unknown]
